FAERS Safety Report 4379850-6 (Version None)
Quarter: 2004Q2

REPORT INFORMATION
  Report Type: 
  Country: None (occurrence: None)
  Receive Date: 20040617
  Receipt Date: 20040609
  Transmission Date: 20050107
  Serious: Yes (Hospitalization)
  Sender: FDA-Public Use
  Company Number: JP-BRISTOL-MYERS SQUIBB COMPANY-12609954

PATIENT
  Age: 55 Year
  Sex: Female

DRUGS (2)
  1. TAXOL [Suspect]
     Indication: BREAST CANCER RECURRENT
  2. RADIOTHERAPY [Concomitant]

REACTIONS (3)
  - ABDOMINAL PAIN UPPER [None]
  - OESOPHAGEAL ULCER [None]
  - ORAL ADMINISTRATION COMPLICATION [None]
